FAERS Safety Report 6573109-4 (Version None)
Quarter: 2010Q1

REPORT INFORMATION
  Report Type: 
  Country: None (occurrence: None)
  Receive Date: 20100208
  Receipt Date: 20100202
  Transmission Date: 20100710
  Serious: Yes (Death)
  Sender: FDA-Public Use
  Company Number: JP-JNJFOC-20100201864

PATIENT
  Age: 65 Year
  Sex: Male

DRUGS (1)
  1. LEUPRORELIN [Suspect]
     Indication: HORMONE THERAPY
     Route: 058

REACTIONS (1)
  - NEUROENDOCRINE CARCINOMA [None]
